FAERS Safety Report 6901092-8 (Version None)
Quarter: 2010Q3

REPORT INFORMATION
  Report Type: 
  Country: None (occurrence: None)
  Receive Date: 20100803
  Receipt Date: 20100727
  Transmission Date: 20110219
  Serious: Yes (Other)
  Sender: FDA-Public Use
  Company Number: US-PFIZER INC-2010014391

PATIENT
  Sex: Male
  Weight: 97.506 kg

DRUGS (12)
  1. LIPITOR [Suspect]
     Indication: BLOOD CHOLESTEROL INCREASED
     Dosage: 20 MG, UNK
     Dates: start: 20091101, end: 20091201
  2. LIPITOR [Suspect]
     Dosage: 20 MG, UNK
  3. TEMODAR [Concomitant]
     Dosage: 150 MG/M2, FOR 5 DAYS
     Dates: start: 20070101
  4. KEPPRA [Concomitant]
     Dosage: 150 MG, 2X/DAY
  5. DILANTIN [Concomitant]
     Dosage: 400 MG, 2X/DAY
  6. LAMICTAL [Concomitant]
     Dosage: 100 MG, 2X/DAY
  7. ZOLOFT [Concomitant]
     Dosage: 100 MG, 1X/DAY
     Route: 048
  8. XANAX [Concomitant]
     Dosage: UNK
  9. ACETYLSALICYLIC ACID [Concomitant]
     Dosage: 325 MG, DAILY
     Route: 048
  10. FOLIC ACID [Concomitant]
     Dosage: 1 MG, 1X/DAY
  11. FOLIC ACID [Concomitant]
  12. DECADRON [Concomitant]
     Dosage: 4 MG, 2X/DAY

REACTIONS (11)
  - CONVULSION [None]
  - COORDINATION ABNORMAL [None]
  - FALL [None]
  - GAIT DISTURBANCE [None]
  - HEMIPARESIS [None]
  - HYPOAESTHESIA [None]
  - NEUROMYOPATHY [None]
  - OEDEMA PERIPHERAL [None]
  - PARAESTHESIA [None]
  - SWELLING [None]
  - VISUAL IMPAIRMENT [None]
